FAERS Safety Report 5155131-8 (Version None)
Quarter: 2006Q4

REPORT INFORMATION
  Report Type: 
  Country: None (occurrence: None)
  Receive Date: 20061121
  Receipt Date: 20060831
  Transmission Date: 20070319
  Serious: Yes (Hospitalization, Other)
  Sender: FDA-Public Use
  Company Number: US-ELI_LILLY_AND_COMPANY-US200609000158

PATIENT
  Sex: Female

DRUGS (1)
  1. FORTEO [Suspect]
     Indication: OSTEOPOROSIS
     Dosage: 20 UG, UNK
     Dates: start: 20060303

REACTIONS (10)
  - BONE PAIN [None]
  - CONTUSION [None]
  - DECUBITUS ULCER [None]
  - HIP ARTHROPLASTY [None]
  - JOINT DISLOCATION [None]
  - PHARMACEUTICAL PRODUCT COMPLAINT [None]
  - POST PROCEDURAL COMPLICATION [None]
  - PYODERMA [None]
  - SKIN INJURY [None]
  - WOUND INFECTION STAPHYLOCOCCAL [None]
